FAERS Safety Report 10834061 (Version 2)
Quarter: 2015Q2

REPORT INFORMATION
  Report Type: Spontaneous
  Country: FR (occurrence: FR)
  Receive Date: 20150219
  Receipt Date: 20150421
  Transmission Date: 20150821
  Serious: Yes (Hospitalization, Other)
  Sender: FDA-Public Use
  Company Number: FR-GILEAD-2015-0134903

PATIENT
  Age: 53 Year
  Sex: Female

DRUGS (2)
  1. SOVALDI [Suspect]
     Active Substance: SOFOSBUVIR
     Indication: ACUTE HEPATITIS C
     Dosage: 400 MG, QD
     Route: 048
     Dates: start: 20141210, end: 20150116
  2. DACLATASVIR [Suspect]
     Active Substance: DACLATASVIR
     Indication: ACUTE HEPATITIS C
     Dosage: 60 MG, QD
     Route: 048
     Dates: start: 20141210, end: 20150116

REACTIONS (3)
  - Punctate keratitis [Recovered/Resolved]
  - Vision blurred [Recovered/Resolved]
  - Off label use [Unknown]

NARRATIVE: CASE EVENT DATE: 20141217
